FAERS Safety Report 11333204 (Version 1)
Quarter: 2015Q3

REPORT INFORMATION
  Report Type: Spontaneous
  Country: US (occurrence: US)
  Receive Date: 20150803
  Receipt Date: 20150803
  Transmission Date: 20151125
  Serious: No
  Sender: FDA-Public Use
  Company Number: US-ELI_LILLY_AND_COMPANY-US200708001100

PATIENT
  Age: 12 Year
  Sex: Male
  Weight: 104.31 kg

DRUGS (7)
  1. ZYPREXA [Suspect]
     Active Substance: OLANZAPINE
     Dosage: 2.5 UNK, UNK
     Dates: start: 20031115
  2. ZYPREXA [Suspect]
     Active Substance: OLANZAPINE
     Dosage: 5 MG, UNK
     Dates: end: 20051129
  3. LITHIUM. [Concomitant]
     Active Substance: LITHIUM
     Dates: start: 20040731, end: 20041027
  4. SEROQUEL [Concomitant]
     Active Substance: QUETIAPINE FUMARATE
     Dates: start: 20050228
  5. DEPAKOTE [Concomitant]
     Active Substance: DIVALPROEX SODIUM
     Dates: start: 20040731, end: 20041027
  6. EFFEXOR [Concomitant]
     Active Substance: VENLAFAXINE HYDROCHLORIDE
     Dates: start: 20040110, end: 20060508
  7. LITHIUM. [Concomitant]
     Active Substance: LITHIUM
     Dates: start: 20050927

REACTIONS (4)
  - Weight increased [Unknown]
  - Blood cholesterol abnormal [Unknown]
  - Hepatic function abnormal [Unknown]
  - Blood triglycerides increased [Unknown]

NARRATIVE: CASE EVENT DATE: 20031014
